FAERS Safety Report 8992809 (Version 1)
Quarter: 2013Q1

REPORT INFORMATION
  Report Type: Spontaneous
  Country: US (occurrence: US)
  Receive Date: 20130102
  Receipt Date: 20130102
  Transmission Date: 20140127
  Serious: No
  Sender: FDA-Public Use
  Company Number: US-009507513-1212USA010482

PATIENT
  Sex: Female

DRUGS (5)
  1. COZAAR [Suspect]
     Indication: HYPERTENSION
     Dosage: 100 MG, BID
     Route: 048
     Dates: start: 199602
  2. COZAAR [Suspect]
     Dosage: 100 MG, BID
     Dates: start: 2006
  3. CELEBREX [Concomitant]
     Dosage: UNK
     Dates: end: 20121222
  4. ALTRAMET [Concomitant]
     Dosage: UNK
     Dates: end: 20121222
  5. LOSARTAN AND HYDROCHLOROTHIAZIDE [Suspect]
     Dosage: UNK
     Route: 048
     Dates: start: 2006

REACTIONS (3)
  - Blood pressure abnormal [Not Recovered/Not Resolved]
  - Blood pressure diastolic increased [Not Recovered/Not Resolved]
  - Drug ineffective [Unknown]
